FAERS Safety Report 6493213-9 (Version None)
Quarter: 2009Q4

REPORT INFORMATION
  Report Type: 
  Country: None (occurrence: None)
  Receive Date: 20091214
  Receipt Date: 20091202
  Transmission Date: 20100525
  Serious: Yes (Hospitalization)
  Sender: FDA-Public Use
  Company Number: DE-AMGEN-US378559

PATIENT
  Age: 59 Year
  Sex: Male

DRUGS (2)
  1. ENBREL [Suspect]
     Indication: RHEUMATOID ARTHRITIS
     Route: 058
     Dates: start: 20090326
  2. ENBREL [Suspect]
     Indication: POLYARTHRITIS

REACTIONS (2)
  - GALLBLADDER OPERATION [None]
  - HIP ARTHROPLASTY [None]
